FAERS Safety Report 5533001-0 (Version None)
Quarter: 2007Q4

REPORT INFORMATION
  Report Type: 
  Country: None (occurrence: None)
  Receive Date: 20071204
  Receipt Date: 20071127
  Transmission Date: 20080405
  Serious: Yes (Other)
  Sender: FDA-Public Use
  Company Number: PHBS2007BR19945

PATIENT
  Sex: Female

DRUGS (1)
  1. FORASEQ [Suspect]
     Dosage: UNK, QD

REACTIONS (4)
  - CATARACT [None]
  - EYE DISORDER [None]
  - INTRAOCULAR PRESSURE TEST ABNORMAL [None]
  - VISION BLURRED [None]
